FAERS Safety Report 4967987-X (Version None)
Quarter: 2006Q2

REPORT INFORMATION
  Report Type: 
  Country: None (occurrence: None)
  Receive Date: 20060403
  Receipt Date: 20060322
  Transmission Date: 20061013
  Serious: Yes (Other)
  Sender: FDA-Public Use
  Company Number: 2006040962

PATIENT
  Age: 57 Year
  Sex: Male
  Weight: 117.9352 kg

DRUGS (5)
  1. XALATAN [Suspect]
     Indication: GLAUCOMA
     Dosage: 2 DROP (1 D), OPHTHALMIC
     Route: 047
  2. TAMSULOSIN HCL [Concomitant]
  3. MULTIVITAMIN [Concomitant]
  4. VITAMIN CAP [Concomitant]
  5. OMEGA 3 (FISH OIL) [Concomitant]

REACTIONS (8)
  - CONDITION AGGRAVATED [None]
  - HYPOAESTHESIA EYE [None]
  - IATROGENIC INJURY [None]
  - INCORRECT DOSE ADMINISTERED [None]
  - OPTIC NERVE DISORDER [None]
  - RETINAL DETACHMENT [None]
  - STENT PLACEMENT [None]
  - VISUAL ACUITY REDUCED [None]
